FAERS Safety Report 7260886-2 (Version None)
Quarter: 2011Q1

REPORT INFORMATION
  Report Type: 
  Country: None (occurrence: None)
  Receive Date: 20110128
  Receipt Date: 20110128
  Transmission Date: 20110831
  Serious: Yes (Other)
  Sender: FDA-Public Use
  Company Number: None

PATIENT
  Age: 34 Year
  Sex: Female
  Weight: 53.5244 kg

DRUGS (1)
  1. ALCOHOL PREP PAD STERILE TRIAD GROUP [Suspect]
     Dosage: TWO PADS EVERY OTHER DAY TOP
     Route: 061

REACTIONS (6)
  - INJECTION SITE DISCOLOURATION [None]
  - INJECTION SITE ERYTHEMA [None]
  - INJECTION SITE REACTION [None]
  - INJECTION SITE PAIN [None]
  - INJECTION SITE SWELLING [None]
  - INFLUENZA LIKE ILLNESS [None]
